FAERS Safety Report 5200448-1 (Version None)
Quarter: 2006Q4

REPORT INFORMATION
  Report Type: 
  Country: None (occurrence: None)
  Receive Date: 20061016
  Receipt Date: 20060818
  Transmission Date: 20070319
  Serious: No
  Sender: FDA-Public Use
  Company Number: 2006SP003064

PATIENT
  Age: 51 Year
  Sex: Female
  Weight: 88.4514 kg

DRUGS (7)
  1. LUNESTA [Suspect]
     Indication: INSOMNIA
     Dosage: 2 MG; HS; ORAL
     Route: 048
     Dates: start: 20060808, end: 20060809
  2. AMBIEN [Concomitant]
  3. PROPRANOLOL [Concomitant]
  4. WELLBUTRIN [Concomitant]
  5. LORTAB [Concomitant]
  6. ATIVAN [Concomitant]
  7. FROVA [Concomitant]

REACTIONS (3)
  - DYSGEUSIA [None]
  - HALLUCINATION [None]
  - INSOMNIA [None]
